FAERS Safety Report 5080731-3 (Version None)
Quarter: 2006Q3

REPORT INFORMATION
  Report Type: 
  Country: None (occurrence: None)
  Receive Date: 20060809
  Receipt Date: 20060728
  Transmission Date: 20061208
  Serious: Yes (Hospitalization)
  Sender: FDA-Public Use
  Company Number: 2006092788

PATIENT
  Age: 42 Year
  Sex: Male

DRUGS (3)
  1. AMLODIPINE [Suspect]
     Indication: DRUG USE FOR UNKNOWN INDICATION
     Dosage: 1000 MG, ORAL
     Route: 048
  2. MEFENAMIC ACID [Suspect]
     Indication: DRUG USE FOR UNKNOWN INDICATION
     Dosage: 3000 MG, ORAL
     Route: 048
  3. CHLORTHALIDONE [Suspect]
     Indication: DRUG USE FOR UNKNOWN INDICATION
     Dosage: 3000 MG, ORAL
     Route: 048

REACTIONS (7)
  - DRUG LEVEL ABOVE THERAPEUTIC [None]
  - DRUG TOXICITY [None]
  - HYPOTENSION [None]
  - LETHARGY [None]
  - OLIGURIA [None]
  - PULMONARY OEDEMA [None]
  - SUICIDE ATTEMPT [None]
